FAERS Safety Report 10738009 (Version 1)
Quarter: 2015Q1

REPORT INFORMATION
  Report Type: Spontaneous
  Country: US (occurrence: None)
  Receive Date: 20150122
  Receipt Date: 20150122
  Transmission Date: 20150721
  Serious: Yes (Death, Life-Threatening, Hospitalization, Other)
  Sender: FDA-Public Use
  Company Number: ADR-2015-00029

PATIENT
  Age: 93 Year
  Sex: Male

DRUGS (6)
  1. CYMBALTA [Suspect]
     Active Substance: DULOXETINE HYDROCHLORIDE
  2. COMPOUNDED BACLOFEN INTRATHECAL - 400 MCG/ML [Suspect]
     Active Substance: BACLOFEN
     Indication: MUSCLE SPASTICITY
  3. TYLENOL [Suspect]
     Active Substance: ACETAMINOPHEN
  4. BUPIVACAINE INTRATHECAL [Suspect]
     Active Substance: BUPIVACAINE
  5. NEURONTIN [Suspect]
     Active Substance: GABAPENTIN
  6. ZOFRAN [Suspect]
     Active Substance: ONDANSETRON HYDROCHLORIDE

REACTIONS (3)
  - Kidney infection [None]
  - Septic shock [None]
  - Cardiac arrest [None]

NARRATIVE: CASE EVENT DATE: 20150102
